FAERS Safety Report 9705101 (Version 3)
Quarter: 2014Q1

REPORT INFORMATION
  Report Type: Spontaneous
  Country: CA (occurrence: CA)
  Receive Date: 20131122
  Receipt Date: 20140102
  Transmission Date: 20141002
  Serious: Yes (Other)
  Sender: FDA-Public Use
  Company Number: CA-AMGEN-CANSP2013009318

PATIENT
  Age: 59 Year
  Sex: Female
  Weight: 95.24 kg

DRUGS (9)
  1. ENBREL [Suspect]
     Indication: PSORIASIS
     Dosage: 50 MG, 2 TIMES/WK
     Route: 058
     Dates: start: 20120106, end: 201307
  2. VERAPAMIL [Concomitant]
     Dosage: 2.4 MG, UNK
  3. LISINOPRIL                         /00894002/ [Concomitant]
     Dosage: 5 MG, UNK
  4. LIPITOR [Concomitant]
     Dosage: 20 MG, UNK
  5. AMITRIPTYLINE [Concomitant]
     Dosage: 200 MG, UNK
  6. SYMBICORT [Concomitant]
     Indication: ASTHMA
     Dosage: 200 MUG, UNK
  7. ELAVIL                             /00002202/ [Concomitant]
     Indication: DEPRESSION
     Dosage: 200 MG, QD
     Route: 048
  8. APO-VERAP [Concomitant]
     Indication: HYPERTENSION
     Dosage: 240 MG, QD
     Route: 048
  9. ATORVASTATIN [Concomitant]
     Indication: HYPERLIPIDAEMIA
     Dosage: 20 MG, QD
     Route: 048

REACTIONS (3)
  - Diverticulitis [Not Recovered/Not Resolved]
  - Lung infection [Unknown]
  - Urinary tract infection [Not Recovered/Not Resolved]
